FAERS Safety Report 5238743-2 (Version None)
Quarter: 2007Q1

REPORT INFORMATION
  Report Type: 
  Country: None (occurrence: None)
  Receive Date: 20070215
  Receipt Date: 20061227
  Transmission Date: 20070707
  Serious: Yes (Other)
  Sender: FDA-Public Use
  Company Number: US-PFIZER INC-2007000739

PATIENT
  Sex: Female
  Weight: 81.6 kg

DRUGS (10)
  1. CHANTIX [Suspect]
     Indication: SMOKING CESSATION THERAPY
     Dates: start: 20060901, end: 20061204
  2. KEPPRA [Suspect]
     Indication: MANIA
     Dates: start: 20061101, end: 20060101
  3. CYMBALTA [Concomitant]
  4. TOPAMAX [Concomitant]
  5. TRILEPTAL [Concomitant]
  6. ABILIFY [Concomitant]
  7. NEXIUM [Concomitant]
  8. LOVASTATIN [Concomitant]
  9. VERAPAMIL [Concomitant]
     Indication: HYPERTENSION
  10. MIACALCIN [Concomitant]

REACTIONS (11)
  - BALANCE DISORDER [None]
  - BRAIN OEDEMA [None]
  - COORDINATION ABNORMAL [None]
  - DIPLOPIA [None]
  - DIZZINESS [None]
  - DYSARTHRIA [None]
  - MANIA [None]
  - MUSCLE SPASMS [None]
  - MUSCULAR WEAKNESS [None]
  - VISION BLURRED [None]
  - VISUAL ACUITY REDUCED [None]
